FAERS Safety Report 21835100 (Version 2)
Quarter: 2023Q1

REPORT INFORMATION
  Report Type: Report from Study
  Country: US (occurrence: US)
  Receive Date: 20230109
  Receipt Date: 20230323
  Transmission Date: 20230418
  Serious: No
  Sender: FDA-Public Use
  Company Number: US-ABBVIE-4261125

PATIENT
  Sex: Male

DRUGS (1)
  1. IMBRUVICA [Suspect]
     Active Substance: IBRUTINIB
     Indication: Chronic lymphocytic leukaemia
     Route: 048
     Dates: start: 20220826

REACTIONS (4)
  - Muscle spasms [Not Recovered/Not Resolved]
  - Sinus disorder [Not Recovered/Not Resolved]
  - Cough [Not Recovered/Not Resolved]
  - Respiratory tract congestion [Not Recovered/Not Resolved]
